FAERS Safety Report 21163504 (Version 1)
Quarter: 2022Q3

REPORT INFORMATION
  Report Type: Spontaneous
  Country: FR (occurrence: FR)
  Receive Date: 20220802
  Receipt Date: 20220802
  Transmission Date: 20221027
  Serious: Yes (Life-Threatening)
  Sender: FDA-Public Use
  Company Number: None

PATIENT
  Age: 63 Year
  Sex: Male
  Weight: 85 kg

DRUGS (1)
  1. LINEZOLID [Suspect]
     Active Substance: LINEZOLID
     Indication: Enterococcal infection
     Dosage: THERAPY DURATION : 5 DAYS
     Route: 065
     Dates: start: 20220619, end: 20220624

REACTIONS (1)
  - Lactic acidosis [Unknown]

NARRATIVE: CASE EVENT DATE: 20220624
